FAERS Safety Report 10339188 (Version 1)
Quarter: 2014Q3

REPORT INFORMATION
  Report Type: Spontaneous
  Country: US (occurrence: None)
  Receive Date: 20140722
  Receipt Date: 20140722
  Transmission Date: 20150326
  Serious: Yes (Hospitalization)
  Sender: FDA-Public Use
  Company Number: None

PATIENT
  Age: 54 Year
  Sex: Male
  Weight: 60 kg

DRUGS (4)
  1. TACROLIMUS. [Concomitant]
     Active Substance: TACROLIMUS
  2. CELLCEPT [Concomitant]
     Active Substance: MYCOPHENOLATE MOFETIL\MYCOPHENOLATE MOFETIL HYDROCHLORIDE
  3. RITUXIMAB [Suspect]
     Active Substance: RITUXIMAB
     Indication: PRODUCT USED FOR UNKNOWN INDICATION
     Dosage: 1000 MG ONCE IVFB (GIVEN ON DAY 15 PRE TRANSPLANT) ?01/03/14 X 1 INFUSED OVER 6 H
     Dates: start: 20140103
  4. PREDNISONE. [Concomitant]
     Active Substance: PREDNISONE

REACTIONS (7)
  - Dehydration [None]
  - Electrolyte imbalance [None]
  - Toxicity to various agents [None]
  - Hyperkalaemia [None]
  - Hypercalcaemia [None]
  - Metabolic acidosis [None]
  - Hypomagnesaemia [None]

NARRATIVE: CASE EVENT DATE: 20140718
